FAERS Safety Report 9167658 (Version 1)
Quarter: 2013Q1

REPORT INFORMATION
  Report Type: Spontaneous
  Country: CA (occurrence: CA)
  Receive Date: 20130318
  Receipt Date: 20130318
  Transmission Date: 20140127
  Serious: Yes (Other)
  Sender: FDA-Public Use
  Company Number: PHHY2013CA025621

PATIENT
  Age: 85 None
  Sex: Female

DRUGS (1)
  1. ACLASTA [Suspect]
     Indication: OSTEOPOROSIS
     Dosage: 5 MG /100 ML, UNK
     Route: 042
     Dates: start: 20111005

REACTIONS (2)
  - Dementia [Unknown]
  - Glomerular filtration rate decreased [Unknown]
